FAERS Safety Report 24749721 (Version 1)
Quarter: 2024Q4

REPORT INFORMATION
  Report Type: Spontaneous
  Country: IN (occurrence: IN)
  Receive Date: 20241218
  Receipt Date: 20241218
  Transmission Date: 20250114
  Serious: Yes (Other)
  Sender: PFIZER
  Company Number: IN-PFIZER INC-2021592820

PATIENT
  Age: 72 Year
  Sex: Female
  Weight: 59 kg

DRUGS (3)
  1. SUTENT [Suspect]
     Active Substance: SUNITINIB MALATE
     Indication: Renal cell carcinoma
     Dosage: 50 MG, 1X/DAY
     Route: 048
     Dates: start: 20180802
  2. SUTENT [Suspect]
     Active Substance: SUNITINIB MALATE
     Indication: Metastases to lung
     Dosage: 37.5 MG, 1X/DAY
     Route: 048
     Dates: start: 20181112, end: 20190314
  3. SUTENT [Suspect]
     Active Substance: SUNITINIB MALATE
     Dosage: 37.5 MG
     Route: 048
     Dates: start: 202104

REACTIONS (11)
  - Joint swelling [Unknown]
  - Arthralgia [Unknown]
  - Gait disturbance [Unknown]
  - Fatigue [Unknown]
  - Pain in extremity [Unknown]
  - Neoplasm progression [Unknown]
  - Mucosal inflammation [Unknown]
  - Abdominal pain [Unknown]
  - Vomiting [Unknown]
  - Blood thyroid stimulating hormone increased [Unknown]
  - Inappropriate schedule of product administration [Unknown]
